FAERS Safety Report 5294022-9 (Version None)
Quarter: 2007Q2

REPORT INFORMATION
  Report Type: 
  Country: None (occurrence: None)
  Receive Date: 20070411
  Receipt Date: 20070403
  Transmission Date: 20071010
  Serious: Yes (Hospitalization, Other)
  Sender: FDA-Public Use
  Company Number: AU-ABBOTT-07P-008-0363976-00

PATIENT
  Age: 20 Year
  Sex: Male

DRUGS (1)
  1. VALPROATE SODIUM [Suspect]
     Indication: DRUG USE FOR UNKNOWN INDICATION
     Route: 048

REACTIONS (4)
  - AMMONIA INCREASED [None]
  - BRAIN OEDEMA [None]
  - DRUG LEVEL INCREASED [None]
  - OVERDOSE [None]
